FAERS Safety Report 11643974 (Version 1)
Quarter: 2015Q4

REPORT INFORMATION
  Report Type: Spontaneous
  Country: US (occurrence: None)
  Receive Date: 20151019
  Receipt Date: 20151019
  Transmission Date: 20160304
  Serious: Yes (Disabling)
  Sender: FDA-Public Use
  Company Number: None

PATIENT
  Age: 18 Year
  Sex: Male
  Weight: 77.11 kg

DRUGS (1)
  1. LEVAQUIN [Suspect]
     Active Substance: LEVOFLOXACIN
     Indication: PNEUMONIA
     Route: 048
     Dates: start: 20110225, end: 20110304

REACTIONS (4)
  - Arthralgia [None]
  - Myalgia [None]
  - Neuropathy peripheral [None]
  - Basedow^s disease [None]

NARRATIVE: CASE EVENT DATE: 20110221
